FAERS Safety Report 11216341 (Version 2)
Quarter: 2015Q2

REPORT INFORMATION
  Report Type: Report from Study
  Country: US (occurrence: US)
  Receive Date: 20150624
  Receipt Date: 20150626
  Transmission Date: 20150821
  Serious: Yes (Hospitalization)
  Sender: FDA-Public Use
  Company Number: US-009507513-1506USA009412

PATIENT
  Age: 78 Year
  Sex: Male
  Weight: 78.34 kg

DRUGS (14)
  1. CHOLECALCIFEROL [Concomitant]
     Active Substance: CHOLECALCIFEROL
     Dosage: DOSE: 1000 UNITS, FREQUENCY: UNKNOWN
     Dates: start: 20150511
  2. CYANOCOBALAMIN. [Concomitant]
     Active Substance: CYANOCOBALAMIN
     Dosage: DOSE: 50 MCG, FREQUENCY: UNKNOWN
     Dates: start: 20150511
  3. LEVETIRACETAM. [Concomitant]
     Active Substance: LEVETIRACETAM
     Dosage: DOSE: 1000MG, FREQUENCY: UNKNOWN
     Dates: start: 20150210
  4. SENNOSIDES. [Concomitant]
     Active Substance: SENNOSIDES
     Dosage: 8.6 MG, UNK
     Dates: start: 20141223
  5. TAMSULOSIN HYDROCHLORIDE. [Concomitant]
     Active Substance: TAMSULOSIN HYDROCHLORIDE
     Dosage: 0.4 MG, EXTENDED RELEASE
     Dates: start: 20141223
  6. PEMBROLIZUMAB. [Suspect]
     Active Substance: PEMBROLIZUMAB
     Indication: GLIOBLASTOMA
     Dosage: 200 MG, Q3W
     Route: 042
     Dates: start: 20150413
  7. BEVACIZUMAB [Suspect]
     Active Substance: BEVACIZUMAB
     Indication: GLIOBLASTOMA
     Dosage: 10 MG/KG, QOW
     Dates: start: 20150413
  8. DOCUSATE SODIUM. [Concomitant]
     Active Substance: DOCUSATE SODIUM
     Dosage: DOSE: 100MG, FREQUENCY: UNKNOWN
     Dates: start: 20150511
  9. SILDENAFIL CITRATE. [Concomitant]
     Active Substance: SILDENAFIL CITRATE
     Dosage: 100 MG, UNK
  10. TYLENOL [Concomitant]
     Active Substance: ACETAMINOPHEN
     Dosage: 650 MG,
     Dates: start: 20141223
  11. ALPRAZOLAM. [Concomitant]
     Active Substance: ALPRAZOLAM
     Dosage: .25 MG, UNK
     Dates: start: 20150319
  12. LORATADINE. [Concomitant]
     Active Substance: LORATADINE
     Dosage: 10 MG, UNK
     Dates: start: 20150413
  13. METHYLPHENIDATE [Concomitant]
     Active Substance: METHYLPHENIDATE
     Dosage: 5 MG, UNK
     Dates: start: 20150610
  14. PRILOSEC [Concomitant]
     Active Substance: OMEPRAZOLE MAGNESIUM
     Dosage: 20 MG, UNK
     Dates: start: 20081231

REACTIONS (1)
  - Dizziness [Unknown]

NARRATIVE: CASE EVENT DATE: 20150615
